FAERS Safety Report 20637697 (Version 1)
Quarter: 2022Q1

REPORT INFORMATION
  Report Type: Spontaneous
  Country: US (occurrence: US)
  Receive Date: 20220325
  Receipt Date: 20220325
  Transmission Date: 20220423
  Serious: No
  Sender: FDA-Public Use
  Company Number: US-PFIZER INC-202101772135

PATIENT
  Age: 35 Year
  Sex: Male
  Weight: 122.47 kg

DRUGS (1)
  1. DIFLUCAN [Suspect]
     Active Substance: FLUCONAZOLE
     Indication: Fungal infection
     Dosage: 100 MG, 1X/DAY (FOR 7 DAYS)
     Route: 048

REACTIONS (7)
  - Therapeutic response unexpected [Unknown]
  - Drug ineffective [Unknown]
  - Abdominal pain upper [Unknown]
  - Tongue disorder [Unknown]
  - Abnormal faeces [Unknown]
  - Faeces discoloured [Unknown]
  - Insomnia [Unknown]
